FAERS Safety Report 7450155-X (Version None)
Quarter: 2011Q2

REPORT INFORMATION
  Report Type: 
  Country: None (occurrence: None)
  Receive Date: 20110422
  Receipt Date: 20110412
  Transmission Date: 20111010
  Serious: Yes (Other)
  Sender: FDA-Public Use
  Company Number: 1000018594

PATIENT
  Age: 63 Year
  Sex: Male
  Weight: 70 kg

DRUGS (8)
  1. ROFLUMILAST (ROFLUMILAST) (TABLETS) [Suspect]
     Indication: CHRONIC OBSTRUCTIVE PULMONARY DISEASE
     Dosage: 500 MCG (500 MCG,1 IN 1 D), ORAL
     Route: 048
     Dates: start: 20101227, end: 20110103
  2. ACETYLSALICYLIC ACID (ACETYLSALICYLIC ACID) [Concomitant]
  3. CALCIUM CARBONATE [Concomitant]
  4. ALBUTEROL SULFATE [Concomitant]
  5. TIOTROPIUM (TIOTROPIUM) [Concomitant]
  6. SALMETEROL / FLUTICASONE (SALMETEROL, FLUTICASONE) (SALMETEROL, FLUTIC [Concomitant]
  7. ALENDRONATE SODIUM [Concomitant]
  8. ESOMEPRAZOLE (ESOMEPRAZOLE) [Concomitant]

REACTIONS (1)
  - SUICIDAL IDEATION [None]
